FAERS Safety Report 4678835-X (Version None)
Quarter: 2005Q2

REPORT INFORMATION
  Report Type: 
  Country: None (occurrence: None)
  Receive Date: 20050531
  Receipt Date: 19990602
  Transmission Date: 20051028
  Serious: Yes (Death, Other)
  Sender: FDA-Public Use
  Company Number: 1999-00001

PATIENT
  Age: 73 Year
  Sex: Male

DRUGS (5)
  1. INTEGRILIN [Suspect]
     Indication: ACUTE CORONARY SYNDROME
     Dosage: SEE IMAGE
     Route: 041
     Dates: end: 19990522
  2. INTEGRILIN [Suspect]
     Indication: ACUTE CORONARY SYNDROME
     Dosage: SEE IMAGE
     Route: 041
     Dates: start: 19990521
  3. INTEGRILIN [Suspect]
     Indication: ACUTE CORONARY SYNDROME
     Dosage: SEE IMAGE
     Route: 041
     Dates: start: 19990521
  4. HEPARIN (HEPARI) [Concomitant]
  5. AMIODARONE HCL [Concomitant]

REACTIONS (4)
  - ACCIDENTAL OVERDOSE [None]
  - HAEMORRHAGE [None]
  - MEDICATION ERROR [None]
  - THERAPEUTIC RESPONSE INCREASED [None]
